FAERS Safety Report 13399168 (Version 1)
Quarter: 2017Q2

REPORT INFORMATION
  Report Type: Spontaneous
  Country: US (occurrence: US)
  Receive Date: 20170404
  Receipt Date: 20170404
  Transmission Date: 20170830
  Serious: No
  Sender: FDA-Public Use
  Company Number: US-LUPIN PHARMACEUTICALS INC.-E2B_00005250

PATIENT
  Age: 72 Year
  Sex: Male
  Weight: 79.38 kg

DRUGS (3)
  1. SERTRALINE HYDROCHLORIDE TABLETS USP, 100 MG [Suspect]
     Active Substance: SERTRALINE HYDROCHLORIDE
     Indication: ANXIETY
     Dosage: 100 MG,QD,
     Route: 048
     Dates: start: 20160327
  2. ASPIRIN. [Concomitant]
     Active Substance: ASPIRIN
     Indication: PRODUCT USED FOR UNKNOWN INDICATION
     Dosage: 81 MG,QD,
     Route: 048
  3. METFORMIN [Concomitant]
     Active Substance: METFORMIN HYDROCHLORIDE
     Indication: TYPE 2 DIABETES MELLITUS
     Dosage: 1500 MG,QD,
     Route: 048

REACTIONS (4)
  - Restlessness [Not Recovered/Not Resolved]
  - Anxiety [Not Recovered/Not Resolved]
  - Sleep disorder [Not Recovered/Not Resolved]
  - Drug ineffective [Unknown]

NARRATIVE: CASE EVENT DATE: 20160327
